FAERS Safety Report 22602800 (Version 1)
Quarter: 2023Q2

REPORT INFORMATION
  Report Type: Spontaneous
  Country: GB (occurrence: GB)
  Receive Date: 20230615
  Receipt Date: 20230615
  Transmission Date: 20230722
  Serious: Yes (Death, Hospitalization)
  Sender: FDA-Public Use
  Company Number: None

PATIENT
  Age: 72 Year
  Sex: Female

DRUGS (3)
  1. SERTRALINE [Suspect]
     Active Substance: SERTRALINE HYDROCHLORIDE
     Indication: Affective disorder
     Dosage: 50 MG TABLETS ONE TO BE TAKEN EACH DAY 28 TABLET
  2. METFORMIN [Concomitant]
     Active Substance: METFORMIN HYDROCHLORIDE
     Dosage: 500MG TABLETS ONE TO BE TAKEN EACH DAY WITH BREAKFAST AND THEN INCREASE
  3. HYDROCORTISONE\MICONAZOLE NITRATE [Concomitant]
     Active Substance: HYDROCORTISONE\MICONAZOLE NITRATE
     Dosage: 2%/1% CREAM (JANSSEN-CILAG LTD) APPLY THINLY TWICE A DAY AS DIRECTED 30 GRAM,  PT STATES NOT?USING

REACTIONS (1)
  - Gastrointestinal haemorrhage [Fatal]
